FAERS Safety Report 23743350 (Version 2)
Quarter: 2024Q4

REPORT INFORMATION
  Report Type: Spontaneous
  Country: MX (occurrence: MX)
  Receive Date: 20240415
  Receipt Date: 20241018
  Transmission Date: 20250115
  Serious: No
  Sender: ROCHE
  Company Number: MX-ROCHE-3525218

PATIENT
  Age: 36 Year
  Sex: Female
  Weight: 53.0 kg

DRUGS (3)
  1. RITUXIMAB [Suspect]
     Active Substance: RITUXIMAB
     Indication: Neuromyelitis optica spectrum disorder
     Dosage: ON 01/FEB/2024, SHE RECEIVED LAST DOSE
     Route: 041
     Dates: start: 201806
  2. GABAPENTIN [Concomitant]
     Active Substance: GABAPENTIN
  3. SENOSIDE [Concomitant]

REACTIONS (5)
  - Off label use [Unknown]
  - Fatigue [Not Recovered/Not Resolved]
  - Gastritis [Not Recovered/Not Resolved]
  - Alopecia [Not Recovered/Not Resolved]
  - Pain [Not Recovered/Not Resolved]

NARRATIVE: CASE EVENT DATE: 20180601
